FAERS Safety Report 18463044 (Version 1)
Quarter: 2020Q4

REPORT INFORMATION
  Report Type: Spontaneous
  Country: US (occurrence: US)
  Receive Date: 20201104
  Receipt Date: 20201104
  Transmission Date: 20210114
  Serious: No
  Sender: FDA-Public Use
  Company Number: US-009507513-2010USA010634

PATIENT
  Sex: Female
  Weight: 68.04 kg

DRUGS (1)
  1. FOSAMAX [Suspect]
     Active Substance: ALENDRONATE SODIUM
     Indication: OSTEOPOROSIS
     Dosage: UNK, ALMOST 20 YEARS AGO
     Dates: start: 2000

REACTIONS (2)
  - Illness [Unknown]
  - Drug ineffective [Unknown]
